FAERS Safety Report 21667527 (Version 1)
Quarter: 2022Q4

REPORT INFORMATION
  Report Type: Spontaneous
  Country: None (occurrence: US)
  Receive Date: 20221201
  Receipt Date: 20221201
  Transmission Date: 20230113
  Serious: No
  Sender: FDA-Public Use
  Company Number: US-Hill Dermaceuticals, Inc.-2135425

PATIENT
  Sex: Male

DRUGS (2)
  1. DERMOTIC [Suspect]
     Active Substance: FLUOCINOLONE ACETONIDE
     Indication: Rash
     Dates: start: 20221103, end: 20221103
  2. ONE-A-DAY NOS [Concomitant]
     Active Substance: MINERALS\VITAMINS
     Route: 048

REACTIONS (4)
  - Pain [None]
  - Application site pain [None]
  - Burning sensation [None]
  - Application site pruritus [None]

NARRATIVE: CASE EVENT DATE: 20221103
